FAERS Safety Report 11559024 (Version 1)
Quarter: 2015Q3

REPORT INFORMATION
  Report Type: Spontaneous
  Country: US (occurrence: US)
  Receive Date: 20150916
  Receipt Date: 20150916
  Transmission Date: 20151125
  Serious: No
  Sender: FDA-Public Use
  Company Number: US-ELI_LILLY_AND_COMPANY-US200808000710

PATIENT
  Age: 67 Year
  Sex: Female

DRUGS (3)
  1. MIACALCIN [Concomitant]
     Active Substance: CALCITONIN SALMON
  2. FORTEO [Suspect]
     Active Substance: TERIPARATIDE
     Indication: OSTEOPOROSIS
     Dates: start: 200704, end: 200803
  3. FORTEO [Suspect]
     Active Substance: TERIPARATIDE
     Dates: start: 20080729

REACTIONS (1)
  - Bone density decreased [Unknown]

NARRATIVE: CASE EVENT DATE: 200803
